FAERS Safety Report 5786794-1 (Version None)
Quarter: 2008Q2

REPORT INFORMATION
  Report Type: 
  Country: None (occurrence: None)
  Receive Date: 20080618
  Receipt Date: 20080605
  Transmission Date: 20081010
  Serious: Yes (Hospitalization, Other)
  Sender: FDA-Public Use
  Company Number: 2008US001414

PATIENT
  Age: 25 Year
  Sex: Male
  Weight: 51 kg

DRUGS (22)
  1. AMBISOME [Suspect]
     Indication: BRONCHOPULMONARY ASPERGILLOSIS
     Dosage: 250 MG, UID/QD,IV NOS
     Route: 042
     Dates: start: 20070921, end: 20071011
  2. AMBISOME [Suspect]
     Indication: BRONCHOPULMONARY ASPERGILLOSIS
     Dosage: 250 MG, UID/QD,IV NOS
     Route: 042
     Dates: start: 20071027, end: 20071028
  3. AMBISOME [Suspect]
     Indication: BRONCHOPULMONARY ASPERGILLOSIS
     Dosage: 250 MG, UID/QD,IV NOS
     Route: 042
     Dates: start: 20071101, end: 20071226
  4. CARBENIN(BETAMIPRON, PANIPENEM) [Suspect]
     Indication: DRUG USE FOR UNKNOWN INDICATION
     Dosage: 2 G, UID/QD, DR,
     Dates: start: 20070927, end: 20071024
  5. CYTARABINE [Suspect]
     Indication: DRUG USE FOR UNKNOWN INDICATION
     Dosage: 3360 MG, UID/QD,
     Dates: start: 20071129, end: 20071201
  6. VEPESID [Suspect]
     Indication: DRUG USE FOR UNKNOWN INDICATION
     Dosage: 170 MG, UID/QD, DR,
     Dates: start: 20071129, end: 20071201
  7. METHOTREXATE [Suspect]
     Indication: DRUG USE FOR UNKNOWN INDICATION
     Dosage: 15 MG, UID/QD,
     Dates: start: 20071129, end: 20071129
  8. DECADRON [Suspect]
     Indication: DRUG USE FOR UNKNOWN INDICATION
     Dosage: 4 MG, UID/QD, 40 MG, UID/QD
     Dates: start: 20071129, end: 20071129
  9. DECADRON [Suspect]
     Indication: DRUG USE FOR UNKNOWN INDICATION
     Dosage: 4 MG, UID/QD, 40 MG, UID/QD
     Dates: start: 20071129, end: 20071201
  10. CLINDAMYCIN HCL [Suspect]
     Indication: DRUG USE FOR UNKNOWN INDICATION
     Dosage: 1200 MG, UID/QD
     Dates: start: 20071208, end: 20071216
  11. HABEKACIN(ARBEKACIN) [Suspect]
     Indication: DRUG USE FOR UNKNOWN INDICATION
     Dosage: 200 MG, UID/QD
     Dates: start: 20071209, end: 20071214
  12. ITRACONAZOLE [Concomitant]
  13. VFEND [Concomitant]
  14. HEPARIN [Concomitant]
  15. LANSOPRAZOLE [Concomitant]
  16. LEVOFLOXACIN [Concomitant]
  17. PLATELETS [Concomitant]
  18. FUNGUARD (MICAFUNGIN SODIUM) [Concomitant]
  19. VANCOMYCIN HYDROCHLORIDE [Concomitant]
  20. RED BLOOD CELLS [Concomitant]
  21. FLAGYL [Concomitant]
  22. ALBUMINAR (ALBUMIN HUMAN) [Concomitant]

REACTIONS (10)
  - ANAEMIA [None]
  - DEEP VEIN THROMBOSIS [None]
  - HICCUPS [None]
  - HYPOKALAEMIA [None]
  - NEUTROPENIA [None]
  - PNEUMONIA [None]
  - PNEUMONIA BACTERIAL [None]
  - PSEUDOMEMBRANOUS COLITIS [None]
  - RENAL IMPAIRMENT [None]
  - THROMBOCYTOPENIA [None]
